FAERS Safety Report 21163548 (Version 1)
Quarter: 2022Q3

REPORT INFORMATION
  Report Type: Spontaneous
  Country: US (occurrence: US)
  Receive Date: 20220802
  Receipt Date: 20220802
  Transmission Date: 20221026
  Serious: No
  Sender: FDA-Public Use
  Company Number: US-Blueprint Medicines Corporation-305

PATIENT
  Sex: Male

DRUGS (1)
  1. AYVAKIT [Suspect]
     Active Substance: AVAPRITINIB
     Indication: Gastrointestinal stromal tumour
     Route: 048
     Dates: start: 20210104

REACTIONS (6)
  - Blood test abnormal [Unknown]
  - Epistaxis [Unknown]
  - Hair colour changes [Unknown]
  - Cognitive disorder [Unknown]
  - Peripheral swelling [Unknown]
  - Rash [Unknown]
